FAERS Safety Report 8688078 (Version 2)
Quarter: 2013Q3

REPORT INFORMATION
  Report Type: Spontaneous
  Country: US (occurrence: US)
  Receive Date: 20120727
  Receipt Date: 20130910
  Transmission Date: 20140515
  Serious: No
  Sender: FDA-Public Use
  Company Number: US-009507513-1207USA008916

PATIENT
  Age: 4 Year
  Sex: Female
  Weight: 22.68 kg

DRUGS (2)
  1. CLARITIN CHEWABLE TABLETS [Suspect]
     Dosage: 40 MG, ONCE
     Route: 048
     Dates: start: 20120710
  2. SINGULAIR [Concomitant]
     Indication: PRODUCT USED FOR UNKNOWN INDICATION
     Dosage: UNK, UNKNOWN

REACTIONS (1)
  - Accidental overdose [Unknown]
